FAERS Safety Report 24178304 (Version 1)
Quarter: 2024Q3

REPORT INFORMATION
  Report Type: Spontaneous
  Country: AR (occurrence: AR)
  Receive Date: 20240806
  Receipt Date: 20240806
  Transmission Date: 20241016
  Serious: Yes (Other)
  Sender: CHEPLAPHARM
  Company Number: AR-CHEPLA-2024010046

PATIENT
  Age: 43 Year
  Sex: Male

DRUGS (9)
  1. CLONAZEPAM [Suspect]
     Active Substance: CLONAZEPAM
     Indication: Suicide attempt
     Dosage: DAILY DOSE: 2 MILLIGRAM
  2. CLONAZEPAM [Suspect]
     Active Substance: CLONAZEPAM
     Indication: Hypersexuality
     Dosage: DAILY DOSE: 2 MILLIGRAM
  3. CLONAZEPAM [Suspect]
     Active Substance: CLONAZEPAM
     Indication: Anxiety
     Dosage: DAILY DOSE: 2 MILLIGRAM
  4. CLONAZEPAM [Suspect]
     Active Substance: CLONAZEPAM
     Indication: Depression
     Dosage: DAILY DOSE: 2 MILLIGRAM
  5. PAROXETINE [Suspect]
     Active Substance: PAROXETINE
     Dosage: DAILY DOSE: 20 MILLIGRAM
  6. ROPINIROLE [Concomitant]
     Active Substance: ROPINIROLE
     Dosage: DYE TO ABRUPTLY DISCONTINUED ROPINIROLE?DAILY DOSE: 8 MILLIGRAM
  7. ROPINIROLE [Concomitant]
     Active Substance: ROPINIROLE
     Dosage: DAILY DOSE: 16 MILLIGRAM
  8. RASAGILINE [Concomitant]
     Active Substance: RASAGILINE\RASAGILINE MESYLATE
     Dosage: DAILY DOSE: 1 MILLIGRAM
  9. ALCOHOL [Suspect]
     Active Substance: ALCOHOL

REACTIONS (3)
  - Suicide attempt [Unknown]
  - Intentional overdose [Unknown]
  - Off label use [Unknown]
